FAERS Safety Report 5619275-6 (Version None)
Quarter: 2008Q1

REPORT INFORMATION
  Report Type: 
  Country: None (occurrence: None)
  Receive Date: 20080205
  Receipt Date: 20080129
  Transmission Date: 20080703
  Serious: Yes (Death, Other)
  Sender: FDA-Public Use
  Company Number: 2008SP002192

PATIENT
  Age: 67 Year
  Sex: Male
  Weight: 76 kg

DRUGS (6)
  1. TEMOZOLOMIDE [Suspect]
     Indication: GLIOBLASTOMA
     Dosage: QD; PO; 190; QD; PO
     Route: 048
     Dates: start: 20070701
  2. TEMOZOLOMIDE [Suspect]
     Indication: GLIOBLASTOMA
     Dosage: QD; PO; 190; QD; PO
     Route: 048
     Dates: start: 20071111
  3. CONVERTIN [Concomitant]
  4. GLUCOPHAGE [Concomitant]
  5. GLIBETIC [Concomitant]
  6. EPANUTIN [Concomitant]

REACTIONS (5)
  - CONVULSION [None]
  - HAEMOGLOBIN DECREASED [None]
  - NEUTROPHIL COUNT INCREASED [None]
  - THROMBOCYTOPENIA [None]
  - WHITE BLOOD CELL COUNT INCREASED [None]
